FAERS Safety Report 22371160 (Version 7)
Quarter: 2023Q4

REPORT INFORMATION
  Report Type: Report from Study
  Country: GB (occurrence: None)
  Receive Date: 20230526
  Receipt Date: 20231002
  Transmission Date: 20240110
  Serious: Yes (Hospitalization)
  Sender: FDA-Public Use
  Company Number: GB-Eisai Medical Research-EC-2023-141057

PATIENT
  Age: 63 Year
  Sex: Male
  Weight: 67.2 kg

DRUGS (6)
  1. LENVATINIB [Suspect]
     Active Substance: LENVATINIB
     Indication: Prostate cancer metastatic
     Route: 048
     Dates: start: 20230511, end: 20230522
  2. LENVATINIB [Suspect]
     Active Substance: LENVATINIB
     Indication: Hormone-refractory prostate cancer
  3. PEMBROLIZUMAB [Suspect]
     Active Substance: PEMBROLIZUMAB
     Indication: Prostate cancer metastatic
     Route: 041
     Dates: start: 20230511, end: 20230511
  4. PEMBROLIZUMAB [Suspect]
     Active Substance: PEMBROLIZUMAB
     Indication: Hormone-refractory prostate cancer
  5. METOCLOPRAMIDE [Concomitant]
     Active Substance: METOCLOPRAMIDE
     Dates: start: 20230426, end: 20230712
  6. CYCLIZINE [Concomitant]
     Active Substance: CYCLIZINE
     Dates: start: 20230510, end: 20230712

REACTIONS (2)
  - Pancreatitis [Recovered/Resolved]
  - Rectal cancer metastatic [Recovered/Resolved]

NARRATIVE: CASE EVENT DATE: 20230521
